FAERS Safety Report 8187799-6 (Version None)
Quarter: 2012Q1

REPORT INFORMATION
  Report Type: 
  Country: None (occurrence: None)
  Receive Date: 20120221
  Receipt Date: 20111205
  Transmission Date: 20120608
  Serious: Yes (Other)
  Sender: FDA-Public Use
  Company Number: PHEH2011US011311

PATIENT
  Age: 70 Year
  Sex: Female

DRUGS (1)
  1. TOBI [Suspect]
     Dosage: 300 MG, EVERY 12 HOURS VIA NEBULIZER IN A CYCLE OF 28 DAYS ON AND 28 DAYS OFF, INHALATION
     Route: 055
     Dates: start: 20091009

REACTIONS (1)
  - SINUSITIS [None]
